FAERS Safety Report 8458467-8 (Version None)
Quarter: 2012Q2

REPORT INFORMATION
  Report Type: 
  Country: None (occurrence: None)
  Receive Date: 20120622
  Receipt Date: 20120618
  Transmission Date: 20120825
  Serious: Yes (Hospitalization, Disabling, Other)
  Sender: FDA-Public Use
  Company Number: US-COVIDIEN/TYCO HEALTHCARE/MALLINCKRODT-T201201900

PATIENT
  Sex: Male

DRUGS (3)
  1. OXYCODONE HCL [Suspect]
     Indication: BACK PAIN
     Dosage: 15 MG, TOOK ONE PILL
     Route: 048
     Dates: start: 20110926, end: 20110926
  2. GLIPIZDE [Concomitant]
     Indication: BLOOD GLUCOSE ABNORMAL
  3. HYDROCHLOROTHIAZIDE [Concomitant]
     Indication: HYPERTENSION

REACTIONS (10)
  - HEADACHE [None]
  - FALL [None]
  - ASTHENIA [None]
  - GAIT DISTURBANCE [None]
  - HALLUCINATION [None]
  - DIZZINESS [None]
  - ACTIVITIES OF DAILY LIVING IMPAIRED [None]
  - VOMITING [None]
  - NAUSEA [None]
  - DYSPNOEA [None]
